FAERS Safety Report 17388927 (Version 1)
Quarter: 2020Q1

REPORT INFORMATION
  Report Type: Report from Study
  Country: None (occurrence: US)
  Receive Date: 20200206
  Receipt Date: 20200206
  Transmission Date: 20200409
  Serious: Yes (Hospitalization)
  Sender: FDA-Public Use
  Company Number: US-ABBVIE-19K-163-2973302-00

PATIENT
  Age: 44 Year
  Sex: Female

DRUGS (1)
  1. HUMIRA [Suspect]
     Active Substance: ADALIMUMAB
     Indication: PSORIASIS
     Route: 058

REACTIONS (6)
  - Fall [Unknown]
  - Spinal column injury [Unknown]
  - Dislocation of vertebra [Unknown]
  - Dyskinesia [Unknown]
  - Hypoaesthesia [Unknown]
  - Telangiectasia [Unknown]

NARRATIVE: CASE EVENT DATE: 20190816
